FAERS Safety Report 6496985-2 (Version None)
Quarter: 2009Q4

REPORT INFORMATION
  Report Type: 
  Country: None (occurrence: None)
  Receive Date: 20091215
  Receipt Date: 20081124
  Transmission Date: 20100525
  Serious: No
  Sender: FDA-Public Use
  Company Number: A0758129A

PATIENT
  Age: 65 Year
  Sex: Male

DRUGS (3)
  1. AVODART [Suspect]
     Indication: BENIGN PROSTATIC HYPERPLASIA
     Dosage: .5MG PER DAY
     Route: 048
     Dates: start: 20030101
  2. TYROSINE [Concomitant]
  3. DOXAZOSIN [Concomitant]

REACTIONS (3)
  - DRUG INEFFECTIVE [None]
  - DYSURIA [None]
  - ERECTILE DYSFUNCTION [None]
